FAERS Safety Report 24970319 (Version 1)
Quarter: 2025Q1

REPORT INFORMATION
  Report Type: Spontaneous
  Country: HR (occurrence: HR)
  Receive Date: 20250214
  Receipt Date: 20250214
  Transmission Date: 20250409
  Serious: Yes (Other)
  Sender: CHEPLAPHARM
  Company Number: None

PATIENT
  Sex: Female

DRUGS (4)
  1. CLONAZEPAM [Suspect]
     Active Substance: CLONAZEPAM
     Indication: Suicide attempt
     Dosage: DAILY DOSE: 25 MILLIGRAM
     Route: 048
     Dates: start: 20241204, end: 20241204
  2. IBUPROFEN [Suspect]
     Active Substance: IBUPROFEN
     Indication: Suicide attempt
     Dosage: DAILY DOSE: 24 GRAM
     Route: 048
     Dates: start: 20241204, end: 20241204
  3. ZOLOFT [Suspect]
     Active Substance: SERTRALINE HYDROCHLORIDE
     Indication: Suicide attempt
     Dosage: DAILY DOSE: 1400 MILLIGRAM
     Route: 048
     Dates: start: 20241204, end: 20241204
  4. ZALDIAR [Suspect]
     Active Substance: ACETAMINOPHEN\TRAMADOL HYDROCHLORIDE
     Indication: Suicide attempt
     Dosage: 2 CAKES OF ZALDIARA
     Route: 048
     Dates: start: 20241204, end: 20241204

REACTIONS (4)
  - Suicide attempt [Unknown]
  - Intentional overdose [Unknown]
  - Sluggishness [Unknown]
  - Aphasia [Unknown]

NARRATIVE: CASE EVENT DATE: 20241205
